FAERS Safety Report 7404648-1 (Version None)
Quarter: 2011Q2

REPORT INFORMATION
  Report Type: 
  Country: None (occurrence: None)
  Receive Date: 20110411
  Receipt Date: 20110331
  Transmission Date: 20111010
  Serious: No
  Sender: FDA-Public Use
  Company Number: US-BIOGENIDEC-2010BI042876

PATIENT
  Sex: Female

DRUGS (2)
  1. AVONEX [Concomitant]
     Indication: MULTIPLE SCLEROSIS
     Route: 030
     Dates: start: 20010313
  2. TYSABRI [Suspect]
     Indication: MULTIPLE SCLEROSIS
     Route: 042
     Dates: start: 20101104, end: 20101202

REACTIONS (7)
  - ADVERSE DRUG REACTION [None]
  - DYSPNOEA [None]
  - ADVERSE EVENT [None]
  - DRUG SPECIFIC ANTIBODY PRESENT [None]
  - FEELING ABNORMAL [None]
  - INFUSION RELATED REACTION [None]
  - ANXIETY [None]
